FAERS Safety Report 15011768 (Version 1)
Quarter: 2018Q2

REPORT INFORMATION
  Report Type: Spontaneous
  Country: JP (occurrence: JP)
  Receive Date: 20180614
  Receipt Date: 20180614
  Transmission Date: 20180711
  Serious: Yes (Other)
  Sender: FDA-Public Use
  Company Number: JP-GLAXOSMITHKLINE-JP2018086923

PATIENT
  Age: 82 Year
  Sex: Male

DRUGS (1)
  1. DICLOFENAC SODIUM. [Suspect]
     Active Substance: DICLOFENAC SODIUM
     Indication: BACK PAIN
     Dosage: ADMINISTERED FOR MANY YEARS
     Route: 065

REACTIONS (3)
  - Gastrointestinal haemorrhage [Unknown]
  - Large intestinal stenosis [Unknown]
  - Large intestinal ulcer [Unknown]
